FAERS Safety Report 19773008 (Version 1)
Quarter: 2021Q3

REPORT INFORMATION
  Report Type: Spontaneous
  Country: SE (occurrence: SE)
  Receive Date: 20210901
  Receipt Date: 20210901
  Transmission Date: 20211014
  Serious: Yes (Other)
  Sender: FDA-Public Use
  Company Number: SE-ROCHE-2899224

PATIENT
  Sex: Female

DRUGS (1)
  1. KADCYLA [Suspect]
     Active Substance: ADO-TRASTUZUMAB EMTANSINE
     Indication: PRODUCT USED FOR UNKNOWN INDICATION
     Route: 065

REACTIONS (9)
  - Metastases to bone [Unknown]
  - Oropharyngeal blistering [Unknown]
  - Metastases to central nervous system [Unknown]
  - Headache [Unknown]
  - Decreased appetite [Unknown]
  - Metastases to pelvis [Unknown]
  - Oral mucosal blistering [Unknown]
  - Alopecia [Unknown]
  - Malaise [Unknown]
